FAERS Safety Report 10144252 (Version 1)
Quarter: 2014Q2

REPORT INFORMATION
  Report Type: Report from Study
  Country: US (occurrence: US)
  Receive Date: 20140430
  Receipt Date: 20140430
  Transmission Date: 20141212
  Serious: Yes (Hospitalization, Other)
  Sender: FDA-Public Use
  Company Number: US-ABBVIE-14P-163-1228332-00

PATIENT
  Age: 53 Year
  Sex: Female

DRUGS (6)
  1. HUMIRA [Suspect]
     Indication: CROHN^S DISEASE
     Dates: start: 200904
  2. HUMIRA [Suspect]
     Dates: end: 2010
  3. HUMIRA [Suspect]
     Dates: end: 2011
  4. HUMIRA [Suspect]
     Dates: start: 2012, end: 201307
  5. PROZAC [Concomitant]
     Indication: DEPRESSION
  6. MULTIVITAMINS [Concomitant]
     Indication: PRODUCT USED FOR UNKNOWN INDICATION
     Dosage: DAILY

REACTIONS (15)
  - Gastrointestinal pain [Not Recovered/Not Resolved]
  - Injection site pain [Not Recovered/Not Resolved]
  - Injection site pruritus [Not Recovered/Not Resolved]
  - Injection site swelling [Not Recovered/Not Resolved]
  - Colectomy [Not Recovered/Not Resolved]
  - Hernia repair [Not Recovered/Not Resolved]
  - Abdominal adhesions [Not Recovered/Not Resolved]
  - Crohn^s disease [Recovered/Resolved]
  - Abdominal pain [Not Recovered/Not Resolved]
  - Diarrhoea [Not Recovered/Not Resolved]
  - Rectal haemorrhage [Not Recovered/Not Resolved]
  - Infection [Not Recovered/Not Resolved]
  - Intestinal perforation [Recovered/Resolved]
  - Procedural complication [Recovered/Resolved]
  - Intestinal stenosis [Recovered/Resolved]
